FAERS Safety Report 6751280-9 (Version None)
Quarter: 2010Q2

REPORT INFORMATION
  Report Type: 
  Country: None (occurrence: None)
  Receive Date: 20100602
  Receipt Date: 20100521
  Transmission Date: 20101027
  Serious: No
  Sender: FDA-Public Use
  Company Number: US-ROXANE LABORATORIES, INC.-2010-RO-00651RO

PATIENT
  Sex: Female

DRUGS (4)
  1. MORPHINE [Suspect]
  2. CODEINE SULFATE [Suspect]
  3. ASPIRIN [Concomitant]
  4. DEMEROL [Concomitant]

REACTIONS (1)
  - DRUG INTOLERANCE [None]
